FAERS Safety Report 7506761-7 (Version None)
Quarter: 2011Q2

REPORT INFORMATION
  Report Type: 
  Country: None (occurrence: None)
  Receive Date: 20110526
  Receipt Date: 20110524
  Transmission Date: 20111010
  Serious: Yes (Other)
  Sender: FDA-Public Use
  Company Number: CHPA2011US07152

PATIENT

DRUGS (1)
  1. NICOTINE [Suspect]
     Indication: SMOKING CESSATION THERAPY
     Dosage: 21 MG, QD
     Route: 062

REACTIONS (4)
  - LACRIMATION INCREASED [None]
  - ABNORMAL DREAMS [None]
  - NIGHTMARE [None]
  - HYPNOPOMPIC HALLUCINATION [None]
